FAERS Safety Report 5353102-X (Version None)
Quarter: 2007Q2

REPORT INFORMATION
  Report Type: 
  Country: None (occurrence: None)
  Receive Date: 20070611
  Receipt Date: 20070608
  Transmission Date: 20071010
  Serious: Yes (Hospitalization)
  Sender: FDA-Public Use
  Company Number: JO-GENENTECH-240526

PATIENT
  Sex: Male
  Weight: 80 kg

DRUGS (2)
  1. MABTHERA [Suspect]
     Dosage: 500 MG, UNK
  2. MABTHERA [Suspect]
     Dosage: 100 MG, UNK

REACTIONS (1)
  - ENCEPHALOPATHY [None]
